FAERS Safety Report 24040576 (Version 11)
Quarter: 2025Q1

REPORT INFORMATION
  Report Type: Spontaneous
  Country: US (occurrence: US)
  Receive Date: 20240702
  Receipt Date: 20250312
  Transmission Date: 20250409
  Serious: No
  Sender: JOHNSON AND JOHNSON
  Company Number: US-JNJFOC-20240678836

PATIENT
  Age: 29 Year
  Sex: Female

DRUGS (15)
  1. SPRAVATO [Suspect]
     Active Substance: ESKETAMINE
     Indication: Major depression
     Route: 045
  2. SPRAVATO [Suspect]
     Active Substance: ESKETAMINE
  3. SPRAVATO [Suspect]
     Active Substance: ESKETAMINE
     Route: 045
  4. SPRAVATO [Suspect]
     Active Substance: ESKETAMINE
     Route: 045
  5. SPRAVATO [Suspect]
     Active Substance: ESKETAMINE
  6. SPRAVATO [Suspect]
     Active Substance: ESKETAMINE
     Route: 045
  7. SPRAVATO [Suspect]
     Active Substance: ESKETAMINE
  8. SPRAVATO [Suspect]
     Active Substance: ESKETAMINE
     Route: 045
  9. SPRAVATO [Suspect]
     Active Substance: ESKETAMINE
     Route: 045
  10. SPRAVATO [Suspect]
     Active Substance: ESKETAMINE
     Route: 045
  11. SPRAVATO [Suspect]
     Active Substance: ESKETAMINE
     Route: 045
  12. SPRAVATO [Suspect]
     Active Substance: ESKETAMINE
     Route: 045
  13. SPRAVATO [Suspect]
     Active Substance: ESKETAMINE
  14. SPRAVATO [Suspect]
     Active Substance: ESKETAMINE
  15. SPRAVATO [Suspect]
     Active Substance: ESKETAMINE
     Route: 045

REACTIONS (2)
  - Device issue [Unknown]
  - Incorrect dose administered by device [Unknown]

NARRATIVE: CASE EVENT DATE: 20240627
